FAERS Safety Report 6436500-2 (Version None)
Quarter: 2009Q4

REPORT INFORMATION
  Report Type: 
  Country: None (occurrence: None)
  Receive Date: 20091111
  Receipt Date: 20091030
  Transmission Date: 20100525
  Serious: Yes (Death, Hospitalization)
  Sender: FDA-Public Use
  Company Number: US-ELI_LILLY_AND_COMPANY-US200911000249

PATIENT
  Age: 26 Year
  Sex: Female

DRUGS (2)
  1. CYMBALTA [Suspect]
     Indication: DEPRESSION
  2. TYLENOL (CAPLET) [Concomitant]
     Dates: start: 20090101

REACTIONS (2)
  - COMPLETED SUICIDE [None]
  - MULTI-ORGAN FAILURE [None]
